FAERS Safety Report 10479121 (Version 1)
Quarter: 2014Q3

REPORT INFORMATION
  Report Type: Spontaneous
  Country: FR (occurrence: FR)
  Receive Date: 20140926
  Receipt Date: 20140926
  Transmission Date: 20150326
  Serious: Yes (Life-Threatening)
  Sender: FDA-Public Use
  Company Number: FR-PFIZER INC-2014264380

PATIENT
  Age: 3 Month
  Sex: Male

DRUGS (6)
  1. ZITHROMAX [Suspect]
     Active Substance: AZITHROMYCIN DIHYDRATE
     Indication: PERTUSSIS
     Dosage: UNK
     Route: 048
     Dates: start: 20140801, end: 20140805
  2. AMIKACIN [Concomitant]
     Active Substance: AMIKACIN
     Dosage: 15 MG/KG, UNK
     Dates: start: 20140730, end: 20140731
  3. CLAFORAN [Concomitant]
     Active Substance: CEFOTAXIME SODIUM
     Indication: MENINGITIS
     Dosage: 300 MG/KG, 1X/DAY
     Route: 042
     Dates: start: 20140730, end: 20140801
  4. DEBRIDAT [Suspect]
     Active Substance: TRIMEBUTINE MALEATE
     Indication: GASTROINTESTINAL DISORDER
     Dosage: 4.8 MG/KG, UNK
     Route: 048
     Dates: start: 20140731, end: 20140803
  5. PARACETAMOL [Concomitant]
     Active Substance: ACETAMINOPHEN
     Indication: PYREXIA
     Dosage: 15 MG/KG, 1X/DAY
     Route: 042
     Dates: start: 20140801
  6. DOLIPRANE [Concomitant]
     Active Substance: ACETAMINOPHEN
     Indication: PYREXIA
     Dosage: UNK

REACTIONS (1)
  - Partial seizures [Recovered/Resolved]

NARRATIVE: CASE EVENT DATE: 20140802
